FAERS Safety Report 5571340-8 (Version None)
Quarter: 2007Q4

REPORT INFORMATION
  Report Type: 
  Country: None (occurrence: None)
  Receive Date: 20071221
  Receipt Date: 20070727
  Transmission Date: 20080405
  Serious: No
  Sender: FDA-Public Use
  Company Number: A0666764A

PATIENT
  Age: 88 Year
  Sex: Female

DRUGS (5)
  1. FLONASE [Suspect]
     Dosage: 1SPR PER DAY
     Route: 045
     Dates: start: 20070726, end: 20070726
  2. LIPITOR [Concomitant]
  3. INDERAL [Concomitant]
  4. LESTEROL [Concomitant]
  5. NEXIUM [Concomitant]

REACTIONS (1)
  - PHARYNGOLARYNGEAL PAIN [None]
